FAERS Safety Report 10671112 (Version 2)
Quarter: 2015Q1

REPORT INFORMATION
  Report Type: Spontaneous
  Country: US (occurrence: US)
  Receive Date: 20141223
  Receipt Date: 20150105
  Transmission Date: 20150720
  Serious: Yes (Life-Threatening, Hospitalization, Other)
  Sender: FDA-Public Use
  Company Number: US-APOTEX-2014AP006359

PATIENT
  Age: 40 Year
  Sex: Male

DRUGS (13)
  1. NICARDIPINE [Concomitant]
     Active Substance: NICARDIPINE
     Indication: HYPERTENSIVE CRISIS
     Dosage: 7 MG/HR
     Route: 050
  2. NIFEDIPINE. [Suspect]
     Active Substance: NIFEDIPINE
     Dosage: 30 MG, DAILY
     Route: 048
  3. ESMOLOL [Concomitant]
     Active Substance: ESMOLOL HYDROCHLORIDE
     Indication: HYPERTENSIVE CRISIS
     Dosage: 100 MCG/KG/MIN
     Route: 042
  4. METHYLPREDNISOLONE. [Suspect]
     Active Substance: METHYLPREDNISOLONE
     Indication: IMMUNOSUPPRESSANT DRUG THERAPY
     Dosage: UNK
     Route: 065
  5. NIFEDIPINE. [Suspect]
     Active Substance: NIFEDIPINE
     Indication: HYPERTENSIVE CRISIS
     Dosage: 120 MG, DAILY
     Route: 048
  6. FENTANYL TRANSDERMAL SYSTEM [Suspect]
     Active Substance: FENTANYL
     Indication: PROCEDURAL PAIN
     Dosage: UNK
     Route: 065
  7. HYDRALAZINE [Concomitant]
     Active Substance: HYDRALAZINE HYDROCHLORIDE
     Indication: HYPERTENSIVE CRISIS
     Route: 040
  8. CLONIDINE. [Concomitant]
     Active Substance: CLONIDINE
     Indication: HYPERTENSIVE CRISIS
     Dosage: 0.3 MG/24 HR (ON POD 8)
     Route: 050
  9. LABETALOL HYDROCHLORIDE INJECTION USP [Suspect]
     Active Substance: LABETALOL HYDROCHLORIDE
     Indication: HYPERTENSIVE CRISIS
     Dosage: UNK
     Route: 040
  10. LABETALOL HYDROCHLORIDE INJECTION USP [Suspect]
     Active Substance: LABETALOL HYDROCHLORIDE
     Dosage: 600 MG, TID
     Route: 048
  11. TACROLIMUS. [Suspect]
     Active Substance: TACROLIMUS
     Indication: IMMUNOSUPPRESSANT DRUG THERAPY
     Dosage: UNK
     Route: 065
  12. CLONIDINE. [Concomitant]
     Active Substance: CLONIDINE
     Indication: HYPERTENSIVE CRISIS
     Dosage: 0.2 MG/24 HR
     Route: 062
  13. HYDROMORPHONE [Suspect]
     Active Substance: HYDROMORPHONE
     Indication: PROCEDURAL PAIN
     Route: 065

REACTIONS (11)
  - Dyspnoea [Unknown]
  - Hypotension [Recovering/Resolving]
  - Gastric ileus [Unknown]
  - Hypertension [Recovered/Resolved]
  - Hypertensive crisis [Recovered/Resolved]
  - Bradycardia [Recovered/Resolved]
  - Hyperhidrosis [Unknown]
  - Overdose [Recovering/Resolving]
  - Chest pain [Unknown]
  - Unresponsive to stimuli [Recovered/Resolved]
  - Drug ineffective [Unknown]
